FAERS Safety Report 7978633-5 (Version None)
Quarter: 2011Q4

REPORT INFORMATION
  Report Type: 
  Country: None (occurrence: None)
  Receive Date: 20111202
  Receipt Date: 20111129
  Transmission Date: 20120403
  Serious: Yes (Hospitalization)
  Sender: FDA-Public Use
  Company Number: 2011SP054272

PATIENT
  Age: 56 Year
  Sex: Male
  Weight: 69.6 kg

DRUGS (13)
  1. DIPRIVAN [Suspect]
     Indication: INDUCTION OF ANAESTHESIA
     Dosage: 70 MG;IV 20 MG;IV ; INDRP
     Route: 042
     Dates: start: 20110826, end: 20110826
  2. DIPRIVAN [Suspect]
     Indication: INDUCTION OF ANAESTHESIA
     Dosage: 70 MG;IV 20 MG;IV ; INDRP
     Route: 042
     Dates: start: 20110826, end: 20110826
  3. DIAZEPAM [Concomitant]
  4. CEFAZOLIN SODIUM [Suspect]
     Indication: INFECTION PROPHYLAXIS
     Dosage: 1 GM;BID;INDRP I GM;INDRP
     Route: 041
     Dates: start: 20110826, end: 20110826
  5. CEFAZOLIN SODIUM [Suspect]
     Indication: INFECTION PROPHYLAXIS
     Dosage: 1 GM;BID;INDRP I GM;INDRP
     Route: 041
     Dates: start: 20110825, end: 20110825
  6. KETALAR [Suspect]
     Indication: INDUCTION OF ANAESTHESIA
     Dosage: 20 MG;IV 30 MG;IV
     Route: 042
     Dates: start: 20110826, end: 20110826
  7. RABEPRAZOLE SODIUM [Concomitant]
  8. SENNOSIDE [Concomitant]
  9. ULTIVA [Suspect]
     Indication: INDUCTION OF ANAESTHESIA
     Dosage: INDRP
     Route: 041
     Dates: start: 20110826, end: 20110826
  10. CELECOXIB [Concomitant]
  11. ROCURONIUM BROMIDE [Suspect]
     Indication: NEUROMUSCULAR BLOCKING THERAPY
     Dosage: 45 MG;IV
     Route: 042
     Dates: start: 20110826, end: 20110826
  12. ROXATIDINE ACETATE HCL [Concomitant]
  13. HEAVY MAGNESIUM OXIDE [Concomitant]

REACTIONS (2)
  - ERYTHEMA [None]
  - URTICARIA [None]
